FAERS Safety Report 7246350-5 (Version None)
Quarter: 2011Q1

REPORT INFORMATION
  Report Type: 
  Country: None (occurrence: None)
  Receive Date: 20110126
  Receipt Date: 20110120
  Transmission Date: 20110831
  Serious: Yes (Other)
  Sender: FDA-Public Use
  Company Number: FR-PFIZER INC-2011015392

PATIENT
  Age: 70 Year
  Sex: Female

DRUGS (8)
  1. VALSARTAN [Concomitant]
     Indication: HYPERTENSION
  2. FUROSEMIDE [Suspect]
     Indication: HYPERTENSION
  3. SALBUTAMOL [Concomitant]
     Indication: ASTHMA
  4. NICARDIPINE [Concomitant]
     Indication: HYPERTENSION
  5. NEBIVOLOL [Concomitant]
     Indication: HYPERTENSION
  6. ALDACTONE [Suspect]
     Indication: HYPERTENSION
  7. ASPIRIN [Concomitant]
  8. CARBAMAZEPINE [Concomitant]
     Indication: EPILEPSY

REACTIONS (2)
  - PROLACTINOMA [None]
  - HYPONATRAEMIA [None]
